FAERS Safety Report 17171263 (Version 1)
Quarter: 2019Q4

REPORT INFORMATION
  Report Type: Spontaneous
  Country: US (occurrence: US)
  Receive Date: 20191218
  Receipt Date: 20191218
  Transmission Date: 20200122
  Serious: No
  Sender: FDA-Public Use
  Company Number: US-SUPERNUS PHARMACEUTICALS, INC.-2019SUP00325

PATIENT
  Age: 17 Year
  Sex: Female
  Weight: 55.78 kg

DRUGS (4)
  1. PROBIOTIC [Concomitant]
     Active Substance: PROBIOTICS NOS
  2. TROKENDI XR [Suspect]
     Active Substance: TOPIRAMATE
     Indication: MIGRAINE
     Dosage: 50 MG, 1X/DAY
     Route: 048
     Dates: start: 201808, end: 201905
  3. MULTIVITAMIN [Concomitant]
     Active Substance: VITAMINS
  4. L-THEANINE [Concomitant]
     Active Substance: DIETARY SUPPLEMENT

REACTIONS (2)
  - Product dose omission [Not Recovered/Not Resolved]
  - Weight decreased [Unknown]

NARRATIVE: CASE EVENT DATE: 201808
